FAERS Safety Report 14482675 (Version 1)
Quarter: 2018Q1

REPORT INFORMATION
  Report Type: Spontaneous
  Country: GB (occurrence: GB)
  Receive Date: 20180203
  Receipt Date: 20180203
  Transmission Date: 20180509
  Serious: Yes (Hospitalization)
  Sender: FDA-Public Use
  Company Number: GB-ROCHE-2065785

PATIENT
  Age: 51 Year
  Sex: Female
  Weight: 67 kg

DRUGS (5)
  1. DOCETAXEL. [Concomitant]
     Active Substance: DOCETAXEL
     Route: 042
  2. GRANISETRON [Concomitant]
     Active Substance: GRANISETRON
     Route: 065
  3. CARBOPLATIN. [Concomitant]
     Active Substance: CARBOPLATIN
     Route: 042
  4. PERTUZUMAB. [Suspect]
     Active Substance: PERTUZUMAB
     Indication: BREAST CANCER
     Dosage: NEO-ADJUVENT CHEMOTHERAPY, STANDARD DOSE MOST RECENT DOSE ON 07/DEC/2017
     Route: 042
     Dates: start: 20170823
  5. TRASTUZUMAB. [Concomitant]
     Active Substance: TRASTUZUMAB
     Route: 042

REACTIONS (1)
  - Hypomagnesaemia [Not Recovered/Not Resolved]

NARRATIVE: CASE EVENT DATE: 20171009
